FAERS Safety Report 4360938-0 (Version None)
Quarter: 2004Q2

REPORT INFORMATION
  Report Type: 
  Country: None (occurrence: None)
  Receive Date: 20040517
  Receipt Date: 20040510
  Transmission Date: 20050107
  Serious: Yes (Hospitalization)
  Sender: FDA-Public Use
  Company Number: ERD2004A00014

PATIENT
  Age: 65 Year
  Sex: Female

DRUGS (10)
  1. PIOGLITAZONE HCL [Suspect]
     Indication: DIABETES MELLITUS NON-INSULIN-DEPENDENT
     Dosage: 45 MG; ORAL
     Route: 048
     Dates: start: 20020613, end: 20040212
  2. ENALAPRIL [Concomitant]
  3. METOPROLOL [Concomitant]
  4. AMLODIPINE [Concomitant]
  5. TICLODIPIN (TICLOPIDINE HYDROCHLORIDE) [Concomitant]
  6. GLIBENCLAMID (GLIBENCLAMIDE) [Concomitant]
  7. METFORMIN HCL [Concomitant]
  8. ACARBOSE [Concomitant]
  9. FAMOTIDINE [Concomitant]
  10. CITALOPRAM [Concomitant]

REACTIONS (1)
  - SKIN ULCER [None]
